FAERS Safety Report 7306124-3 (Version None)
Quarter: 2011Q1

REPORT INFORMATION
  Report Type: 
  Country: None (occurrence: None)
  Receive Date: 20110222
  Receipt Date: 20110128
  Transmission Date: 20110831
  Serious: No
  Sender: FDA-Public Use
  Company Number: US-B.I. PHARMACEUTICALS,INC./RIDGEFIELD-2010-BP-15082BP

PATIENT
  Sex: Female

DRUGS (18)
  1. MINOXIDIL [Concomitant]
     Indication: HYPERTENSION
  2. CLONIDINE [Concomitant]
     Indication: HYPERTENSION
  3. ZOCOR [Concomitant]
     Indication: BLOOD CHOLESTEROL INCREASED
  4. MICRO-K [Concomitant]
  5. DUONEB [Concomitant]
     Indication: CHRONIC OBSTRUCTIVE PULMONARY DISEASE
  6. MULTIVITAMIN [Concomitant]
  7. OXYGEN AT NIGHT [Concomitant]
     Indication: CHRONIC OBSTRUCTIVE PULMONARY DISEASE
  8. HYDROCHLOROTHIAZIDE [Concomitant]
     Indication: HYPERTENSION
  9. TRAVATAN [Concomitant]
  10. LASIX [Concomitant]
     Indication: HYPERTENSION
  11. PULMICORT [Concomitant]
     Indication: CHRONIC OBSTRUCTIVE PULMONARY DISEASE
  12. PREVACID [Concomitant]
     Indication: GASTROOESOPHAGEAL REFLUX DISEASE
  13. TEGRETOL [Concomitant]
     Indication: CONVULSION
  14. PREDNISONE [Concomitant]
     Indication: CHRONIC OBSTRUCTIVE PULMONARY DISEASE
     Dosage: 5 MG
  15. SPIRIVA [Suspect]
     Indication: CHRONIC OBSTRUCTIVE PULMONARY DISEASE
     Dosage: 18 MCG
     Route: 055
     Dates: start: 20050101
  16. SYNTHROID [Concomitant]
     Indication: HYPOTHYROIDISM
  17. KLONOPIN [Concomitant]
     Indication: INSOMNIA
  18. EYE QHS [Concomitant]
     Indication: GLAUCOMA

REACTIONS (4)
  - SLEEP DISORDER [None]
  - DYSPNOEA [None]
  - OROPHARYNGEAL PAIN [None]
  - COUGH [None]
